FAERS Safety Report 11504390 (Version 2)
Quarter: 2015Q3

REPORT INFORMATION
  Report Type: Report from Study
  Country: IE (occurrence: IE)
  Receive Date: 20150915
  Receipt Date: 20150915
  Transmission Date: 20151125
  Serious: Yes (Other)
  Sender: FDA-Public Use
  Company Number: IE-UCBSA-2015028845

PATIENT
  Age: 35 Year
  Sex: Male

DRUGS (1)
  1. CERTOLIZUMAB PEGOL [Suspect]
     Active Substance: CERTOLIZUMAB PEGOL
     Indication: PRODUCT USED FOR UNKNOWN INDICATION
     Dosage: 200 MG, EV 2 WEEKS(QOW)
     Route: 058
     Dates: start: 20150615

REACTIONS (5)
  - Pain [Not Recovered/Not Resolved]
  - Drug ineffective [Unknown]
  - Hepatic function abnormal [Not Recovered/Not Resolved]
  - Condition aggravated [Not Recovered/Not Resolved]
  - Vomiting [Not Recovered/Not Resolved]

NARRATIVE: CASE EVENT DATE: 2015
